FAERS Safety Report 5157130-9 (Version None)
Quarter: 2006Q4

REPORT INFORMATION
  Report Type: 
  Country: None (occurrence: None)
  Receive Date: 20061115
  Receipt Date: 20061108
  Transmission Date: 20070319
  Serious: Yes (Death)
  Sender: FDA-Public Use
  Company Number: OSCN-PR-0609S-0268

PATIENT
  Age: 23 Year
  Sex: Female

DRUGS (1)
  1. OMNISCAN [Suspect]
     Indication: CELLULITIS
     Dosage: 12 ML, SINGLE DOSE, I.V.
     Route: 042
     Dates: start: 20020212, end: 20020212

REACTIONS (6)
  - BEDRIDDEN [None]
  - BONE SCAN ABNORMAL [None]
  - NEPHROGENIC FIBROSING DERMOPATHY [None]
  - PATHOGEN RESISTANCE [None]
  - SEPSIS [None]
  - WHEELCHAIR USER [None]
